FAERS Safety Report 21884317 (Version 1)
Quarter: 2023Q1

REPORT INFORMATION
  Report Type: Spontaneous
  Country: US (occurrence: US)
  Receive Date: 20230119
  Receipt Date: 20230119
  Transmission Date: 20230418
  Serious: Yes (Hospitalization, Other)
  Sender: FDA-Public Use
  Company Number: US-AMGEN-USASP2023006670

PATIENT
  Age: 56 Year
  Sex: Male

DRUGS (2)
  1. XGEVA [Suspect]
     Active Substance: DENOSUMAB
     Indication: Lung adenocarcinoma stage IV
     Dosage: UNK
     Route: 065
  2. ALECTINIB [Concomitant]
     Active Substance: ALECTINIB
     Indication: Lung adenocarcinoma stage IV
     Dosage: UNK

REACTIONS (3)
  - Appendicitis [Unknown]
  - Metastases to bone [Unknown]
  - Gastrointestinal wall thickening [Unknown]
